FAERS Safety Report 5215915-4 (Version None)
Quarter: 2007Q1

REPORT INFORMATION
  Report Type: 
  Country: None (occurrence: None)
  Receive Date: 20070123
  Receipt Date: 20070111
  Transmission Date: 20070707
  Serious: Yes (Hospitalization)
  Sender: FDA-Public Use
  Company Number: PHBS2007AT00851

PATIENT
  Sex: Female
  Weight: 50 kg

DRUGS (1)
  1. GLEEVEC [Suspect]
     Indication: GASTROINTESTINAL STROMAL TUMOUR
     Dosage: 400 MG/DAY
     Route: 048
     Dates: start: 20060301

REACTIONS (5)
  - ASCITES [None]
  - HEPATIC CONGESTION [None]
  - PERICARDIAL EFFUSION [None]
  - POLYSEROSITIS [None]
  - SYSTEMIC LUPUS ERYTHEMATOSUS [None]
